FAERS Safety Report 12481640 (Version 2)
Quarter: 2016Q3

REPORT INFORMATION
  Report Type: Report from Study
  Country: CA (occurrence: CA)
  Receive Date: 20160620
  Receipt Date: 20160816
  Transmission Date: 20161109
  Serious: Yes (Hospitalization, Other)
  Sender: FDA-Public Use
  Company Number: CA-AMGEN-CANSL2016075770

PATIENT
  Age: 65 Year
  Sex: Female

DRUGS (12)
  1. SPIRONOLACTONE. [Suspect]
     Active Substance: SPIRONOLACTONE
     Indication: PRODUCT USED FOR UNKNOWN INDICATION
     Route: 065
  2. ASA [Concomitant]
     Active Substance: ASPIRIN
     Dosage: 81 MG, QD
  3. REPATHA [Suspect]
     Active Substance: EVOLOCUMAB
     Indication: BLOOD CHOLESTEROL ABNORMAL
     Dosage: 140 MG/1 ML, UNK
     Route: 058
     Dates: start: 20160407
  4. INSULIN [Concomitant]
     Active Substance: INSULIN NOS
     Dosage: 20 UNIT, 30/70
  5. EDECRIN [Concomitant]
     Active Substance: ETHACRYNIC ACID
     Dosage: UNK
  6. ISDN [Concomitant]
     Dosage: 10 MG, TID
  7. MICARDIS [Concomitant]
     Active Substance: TELMISARTAN
     Dosage: 80 MG, QD
  8. NICARDIA [Concomitant]
     Dosage: UNK
  9. NITRO [Concomitant]
     Active Substance: NITROGLYCERIN
     Dosage: UNK
  10. HUMALOG [Concomitant]
     Active Substance: INSULIN LISPRO
     Dosage: 18 UNIT, 50/50
  11. VICTOZA [Concomitant]
     Active Substance: LIRAGLUTIDE
     Dosage: 1.8 UNK, UNK
  12. DOXAZOSIN [Concomitant]
     Active Substance: DOXAZOSIN\DOXAZOSIN MESYLATE
     Dosage: 2 MG, QD

REACTIONS (7)
  - Choking [Unknown]
  - Pulmonary oedema [Unknown]
  - Rhinorrhoea [Unknown]
  - Transient ischaemic attack [Unknown]
  - Condition aggravated [Unknown]
  - Gait disturbance [Unknown]
  - Cardiac failure congestive [Not Recovered/Not Resolved]

NARRATIVE: CASE EVENT DATE: 201606
